FAERS Safety Report 5227803-8 (Version None)
Quarter: 2007Q1

REPORT INFORMATION
  Report Type: 
  Country: None (occurrence: None)
  Receive Date: 20070202
  Receipt Date: 20070122
  Transmission Date: 20070707
  Serious: Yes (Other)
  Sender: FDA-Public Use
  Company Number: US-PFIZER INC-2007006875

PATIENT

DRUGS (2)
  1. NEURONTIN [Suspect]
  2. ACTOS [Concomitant]
     Indication: DIABETES MELLITUS

REACTIONS (2)
  - HYPOAESTHESIA [None]
  - MENTAL IMPAIRMENT [None]
